FAERS Safety Report 14316416 (Version 3)
Quarter: 2018Q3

REPORT INFORMATION
  Report Type: Spontaneous
  Country: US (occurrence: US)
  Receive Date: 20171222
  Receipt Date: 20180717
  Transmission Date: 20181010
  Serious: Yes (Death, Hospitalization, Other)
  Sender: FDA-Public Use
  Company Number: US-BRISTOL-MYERS SQUIBB COMPANY-BMS-2017-115162

PATIENT
  Sex: Male

DRUGS (3)
  1. ALLOPURINOL. [Concomitant]
     Active Substance: ALLOPURINOL
     Indication: PRODUCT USED FOR UNKNOWN INDICATION
     Dosage: 300 UNK, UNK
     Route: 048
  2. IMATINIB [Suspect]
     Active Substance: IMATINIB
     Indication: BLAST CRISIS IN MYELOGENOUS LEUKAEMIA
     Dosage: 800 UNK, UNK
     Route: 048
     Dates: end: 20171128
  3. SPRYCEL [Suspect]
     Active Substance: DASATINIB
     Indication: BLAST CRISIS IN MYELOGENOUS LEUKAEMIA
     Dosage: 100 MG, QD
     Route: 048
     Dates: start: 20171129, end: 20171204

REACTIONS (8)
  - Renal failure [Unknown]
  - Gastrointestinal haemorrhage [Unknown]
  - Autoimmune haemolytic anaemia [Unknown]
  - Tumour lysis syndrome [Fatal]
  - Pyrexia [Unknown]
  - Central nervous system haemorrhage [Fatal]
  - Septic shock [Fatal]
  - Cough [Unknown]
